FAERS Safety Report 9205494 (Version 2)
Quarter: 2013Q2

REPORT INFORMATION
  Report Type: Report from Study
  Country: FR (occurrence: FR)
  Receive Date: 20130403
  Receipt Date: 20130423
  Transmission Date: 20140414
  Serious: Yes (Hospitalization)
  Sender: FDA-Public Use
  Company Number: FR-ACTELION-A-CH2013-81050

PATIENT
  Age: 5 Year
  Sex: Female
  Weight: 8.8 kg

DRUGS (3)
  1. ZAVESCA [Suspect]
     Indication: NIEMANN-PICK DISEASE
     Dosage: 100 MG, BID
     Route: 048
     Dates: start: 20120125
  2. ZAVESCA [Suspect]
     Dosage: 100 MG, BID
     Route: 048
     Dates: start: 20090722
  3. ZAVESCA [Suspect]
     Dosage: 200 MG, BID
     Route: 048

REACTIONS (4)
  - Lung infection [Recovered/Resolved]
  - Pneumonia [Unknown]
  - Respiratory distress [Unknown]
  - Dysphagia [Unknown]
